FAERS Safety Report 24180537 (Version 1)
Quarter: 2024Q3

REPORT INFORMATION
  Report Type: Spontaneous
  Country: US (occurrence: None)
  Receive Date: 20240805
  Receipt Date: 20240805
  Transmission Date: 20241017
  Serious: Yes (Other)
  Sender: Public
  Company Number: None

PATIENT
  Age: 76 Year
  Sex: Female
  Weight: 135 kg

DRUGS (1)
  1. SEMAGLUTIDE [Suspect]
     Active Substance: SEMAGLUTIDE
     Indication: Obesity
     Dosage: 0.25 MG EVERY 7 DAYS SUBCUTANEOUS
     Route: 058
     Dates: start: 20240415, end: 20240430

REACTIONS (4)
  - Oedema [None]
  - Lip swelling [None]
  - Swollen tongue [None]
  - Pharyngeal swelling [None]

NARRATIVE: CASE EVENT DATE: 20240424
